FAERS Safety Report 13844092 (Version 2)
Quarter: 2017Q3

REPORT INFORMATION
  Report Type: Spontaneous
  Country: US (occurrence: US)
  Receive Date: 20170808
  Receipt Date: 20170922
  Transmission Date: 20171127
  Serious: No
  Sender: FDA-Public Use
  Company Number: US-PFIZER INC-2017338554

PATIENT
  Age: 69 Year
  Sex: Female
  Weight: 63.5 kg

DRUGS (27)
  1. ACYCLOVIR. [Concomitant]
     Active Substance: ACYCLOVIR
     Dosage: 400 MG, 2X/DAY
     Route: 048
  2. ZITHROMAX [Concomitant]
     Active Substance: AZITHROMYCIN DIHYDRATE
     Dosage: 500 MG, UNK [AS DIRECTED BY PRESCRIBER]
     Route: 048
  3. VITAMIN B12 [Concomitant]
     Active Substance: CYANOCOBALAMIN
     Dosage: 1000 UG, UNK [INTRAMUSCULAR AS DIRECTED BY PRESCRIBER]
     Route: 030
  4. PROGRAF [Concomitant]
     Active Substance: TACROLIMUS\TACROLIMUS ANHYDROUS
     Dosage: 0.5 MG, 2X/DAY
     Route: 048
  5. TRIAMCINOLONE /00031902/ [Concomitant]
     Active Substance: TRIAMCINOLONE ACETONIDE
     Dosage: UNK UNK, 2X/DAY
     Route: 061
  6. SEA OMEGA 50 [Concomitant]
     Dosage: 2 DF, 1X/DAY
     Route: 048
  7. CENTRUM SILVER /02363801/ [Concomitant]
     Active Substance: MINERALS\VITAMINS
     Dosage: 1 DF, 1X/DAY
     Route: 048
  8. PRILOSEC [Concomitant]
     Active Substance: OMEPRAZOLE MAGNESIUM
     Dosage: 40 MG, 1X/DAY
     Route: 048
  9. PENICILLIN V POTASSIUM. [Concomitant]
     Active Substance: PENICILLIN V POTASSIUM
     Dosage: 500 MG, 2X/DAY
     Route: 048
  10. NEURONTIN [Concomitant]
     Active Substance: GABAPENTIN
     Dosage: UNK [1-2 CAPSULES BY MOUTH AS DIRECTED BY PRESCRIBER]
     Route: 048
  11. CORTAID /00028601/ [Concomitant]
     Dosage: UNK UNK, 2X/DAY
     Route: 061
  12. SINGULAIR [Concomitant]
     Active Substance: MONTELUKAST SODIUM
     Dosage: 10 MG, 1X/DAY
     Route: 048
  13. NEBUPENT [Concomitant]
     Active Substance: PENTAMIDINE ISETHIONATE
     Dosage: 300 MG, MONTHLY [INHALATION]
     Route: 055
  14. VFEND [Suspect]
     Active Substance: VORICONAZOLE
     Indication: FUNGAL INFECTION
     Dosage: 200 MG, 2X/DAY [EVERY 12 HOURS]
     Route: 048
     Dates: end: 20170904
  15. VITAMIN D3 [Concomitant]
     Active Substance: CHOLECALCIFEROL
     Dosage: 1000 IU, 1X/DAY
     Route: 048
  16. LASIX [Concomitant]
     Active Substance: FUROSEMIDE
     Dosage: 20 MG, 1X/DAY
     Route: 048
  17. NOXAFIL [Concomitant]
     Active Substance: POSACONAZOLE
     Dosage: 300 MG, 1X/DAY [3 TABLETS]
     Route: 048
  18. K-DUR [Concomitant]
     Active Substance: POTASSIUM CHLORIDE
     Dosage: 20 MEQ, 1X/DAY
     Route: 048
  19. CRESTOR [Concomitant]
     Active Substance: ROSUVASTATIN CALCIUM
     Dosage: 10 MG, 1X/DAY
     Route: 048
  20. MAGNESIUM OXIDE. [Concomitant]
     Active Substance: MAGNESIUM OXIDE
     Dosage: 400 MG, 1X/DAY
     Route: 048
  21. REFRESH TEARS [Concomitant]
     Active Substance: CARBOXYMETHYLCELLULOSE SODIUM
     Dosage: 1 GTT, AS NEEDED [THREE TIMES A DAY]
     Route: 047
  22. ACTIGALL [Concomitant]
     Active Substance: URSODIOL
     Dosage: 300 MG, 2X/DAY
     Route: 048
  23. FLOVENT HFA [Concomitant]
     Active Substance: FLUTICASONE PROPIONATE
     Dosage: UNK UNK, 2X/DAY [2 PUFFS BY INHALATION]
     Route: 055
  24. PREDNISONE. [Concomitant]
     Active Substance: PREDNISONE
     Dosage: 20 MG, 1X/DAY [2 TABLETS]
     Route: 048
  25. RECLAST [Concomitant]
     Active Substance: ZOLEDRONIC ACID
     Dosage: 5 MG, SINGLE
     Route: 042
  26. TYLENOL [Concomitant]
     Active Substance: ACETAMINOPHEN
     Dosage: 1000 MG, AS NEEDED [2 TABLETS BY MOUTH EVERY 8 HOURS]
     Route: 048
  27. ALBUTEROL /00139501/ [Concomitant]
     Active Substance: ALBUTEROL
     Dosage: UNK UNK, AS NEEDED [2 PUFFS BY INHALATION EVERY 4 HOURS]
     Route: 055

REACTIONS (3)
  - Hypersensitivity [Recovered/Resolved]
  - Sunburn [Unknown]
  - Cough [Recovering/Resolving]
